FAERS Safety Report 21096397 (Version 1)
Quarter: 2022Q3

REPORT INFORMATION
  Report Type: Spontaneous
  Country: CH (occurrence: CH)
  Receive Date: 20220718
  Receipt Date: 20220718
  Transmission Date: 20221027
  Serious: No
  Sender: FDA-Public Use
  Company Number: CH-PFIZER INC-202200911565

PATIENT
  Age: 5 Decade
  Sex: Female

DRUGS (1)
  1. MEDROXYPROGESTERONE [Suspect]
     Active Substance: MEDROXYPROGESTERONE
     Indication: Mood swings

REACTIONS (3)
  - Off label use [Unknown]
  - Device deployment issue [Unknown]
  - Incorrect dose administered by device [Unknown]
